FAERS Safety Report 4531067-8 (Version None)
Quarter: 2004Q4

REPORT INFORMATION
  Report Type: 
  Country: None (occurrence: None)
  Receive Date: 20041206
  Receipt Date: 20040827
  Transmission Date: 20050328
  Serious: No
  Sender: FDA-Public Use
  Company Number: USA040876850

PATIENT
  Age: 22 Year
  Sex: Female

DRUGS (3)
  1. CYMBALTA [Suspect]
     Indication: SOMNOLENCE
     Dosage: 60 MG DAY
     Dates: start: 20040823
  2. BEXTRA [Concomitant]
  3. HYDROCODONE [Concomitant]

REACTIONS (1)
  - SENSORY DISTURBANCE [None]
